FAERS Safety Report 7593713-4 (Version None)
Quarter: 2011Q3

REPORT INFORMATION
  Report Type: 
  Country: None (occurrence: None)
  Receive Date: 20110706
  Receipt Date: 20110622
  Transmission Date: 20111222
  Serious: Yes (Hospitalization)
  Sender: FDA-Public Use
  Company Number: PHHY2011AU56206

PATIENT
  Sex: Male

DRUGS (1)
  1. ZOLEDRONIC ACID [Suspect]
     Dosage: UNK
     Dates: start: 20110620

REACTIONS (5)
  - PNEUMONIA [None]
  - DYSPNOEA [None]
  - PAINFUL RESPIRATION [None]
  - MUSCULOSKELETAL PAIN [None]
  - INSOMNIA [None]
